FAERS Safety Report 19157871 (Version 1)
Quarter: 2021Q2

REPORT INFORMATION
  Report Type: Report from Study
  Country: US (occurrence: US)
  Receive Date: 20210420
  Receipt Date: 20210420
  Transmission Date: 20210717
  Serious: Yes (Hospitalization, Other)
  Sender: FDA-Public Use
  Company Number: US-SUN PHARMACEUTICAL INDUSTRIES LTD-2021R1-292061

PATIENT
  Age: 23 Year
  Sex: Female

DRUGS (2)
  1. TACROLIMUS. [Suspect]
     Active Substance: TACROLIMUS
     Indication: IMMUNOSUPPRESSANT DRUG THERAPY
     Dosage: 0.5 MILLIGRAM, DAILY
     Route: 065
  2. PREDNISONE. [Suspect]
     Active Substance: PREDNISONE
     Indication: IMMUNOSUPPRESSANT DRUG THERAPY
     Dosage: 10 MILLIGRAM, DAILY
     Route: 065

REACTIONS (5)
  - Transplant rejection [Unknown]
  - Posterior reversible encephalopathy syndrome [Recovering/Resolving]
  - Acute kidney injury [Recovering/Resolving]
  - Optic neuropathy [Unknown]
  - Acute respiratory distress syndrome [Unknown]
